FAERS Safety Report 5452739-7 (Version None)
Quarter: 2007Q3

REPORT INFORMATION
  Report Type: 
  Country: None (occurrence: None)
  Receive Date: 20070914
  Receipt Date: 20070904
  Transmission Date: 20080115
  Serious: Yes (Hospitalization, Other)
  Sender: FDA-Public Use
  Company Number: HQWYE011205SEP07

PATIENT
  Sex: Female
  Weight: 54 kg

DRUGS (7)
  1. PREMARIN [Suspect]
     Route: 048
     Dates: start: 20070201, end: 20070301
  2. CARDIOL [Concomitant]
     Indication: CARDIOMYOPATHY
     Route: 048
     Dates: start: 20030901
  3. AMLODIPINE BESYLATE [Concomitant]
     Indication: HYPERTENSION
     Route: 048
     Dates: start: 20030901
  4. CAPTOPRIL [Concomitant]
     Indication: HYPERTENSION
     Route: 048
     Dates: start: 20030901
  5. FUROSEMIDE [Concomitant]
     Indication: DIURETIC THERAPY
     Route: 048
     Dates: start: 20030901
  6. PREMARIN [Suspect]
     Dosage: UNSPECIFIED DOSE ONCE DAILY
     Route: 067
     Dates: start: 20070201, end: 20070301
  7. ALDACTONE [Concomitant]
     Indication: CARDIOMYOPATHY
     Route: 048
     Dates: start: 20030901

REACTIONS (4)
  - CEREBRAL HAEMORRHAGE [None]
  - HEADACHE [None]
  - HYPOAESTHESIA [None]
  - NERVOUS SYSTEM DISORDER [None]
